FAERS Safety Report 25741735 (Version 1)
Quarter: 2025Q3

REPORT INFORMATION
  Report Type: Spontaneous
  Country: IN (occurrence: None)
  Receive Date: 20250829
  Receipt Date: 20250829
  Transmission Date: 20251020
  Serious: Yes (Other)
  Sender: FDA-CTU
  Company Number: None

PATIENT
  Age: 42 Year
  Sex: Female
  Weight: 85 kg

DRUGS (3)
  1. CABERGOLINE [Suspect]
     Active Substance: CABERGOLINE
     Indication: Hyperprolactinaemia
     Route: 048
     Dates: start: 20250707, end: 20250811
  2. Thyronarm 88 [Concomitant]
  3. Cabergoline 0.5mg [Concomitant]

REACTIONS (14)
  - Paraesthesia [None]
  - Sensory disturbance [None]
  - Hypoaesthesia [None]
  - Micturition urgency [None]
  - Anxiety [None]
  - Aggression [None]
  - Irritability [None]
  - Crying [None]
  - Affect lability [None]
  - Sedation [None]
  - Social avoidant behaviour [None]
  - Bradyphrenia [None]
  - Speech disorder [None]
  - Impaired quality of life [None]

NARRATIVE: CASE EVENT DATE: 20250711
